FAERS Safety Report 8538634-5 (Version None)
Quarter: 2012Q3

REPORT INFORMATION
  Report Type: 
  Country: None (occurrence: None)
  Receive Date: 20120726
  Receipt Date: 20120725
  Transmission Date: 20120928
  Serious: Yes (Other)
  Sender: FDA-Public Use
  Company Number: US-PFIZER INC-2012180174

PATIENT
  Sex: Female
  Weight: 54.422 kg

DRUGS (4)
  1. CHANTIX [Suspect]
     Indication: SMOKING CESSATION THERAPY
     Dosage: 0.5 MG, DAILY
     Dates: start: 20120601, end: 20120101
  2. CHANTIX [Suspect]
     Dosage: 1 MG, 2X/DAY
     Dates: start: 20120101
  3. CRESTOR [Concomitant]
     Dosage: 40 MG, DAILY
  4. PANTOPRAZOLE [Concomitant]
     Dosage: 40 MG, DAILY

REACTIONS (1)
  - PRURITUS [None]
